FAERS Safety Report 20490659 (Version 3)
Quarter: 2022Q1

REPORT INFORMATION
  Report Type: Spontaneous
  Country: US (occurrence: US)
  Receive Date: 20220218
  Receipt Date: 20220222
  Transmission Date: 20220423
  Serious: Yes (Other)
  Sender: FDA-Public Use
  Company Number: US-SA-SAC20220215000334

PATIENT
  Age: 31 Year
  Sex: Male

DRUGS (5)
  1. DUPIXENT [Suspect]
     Active Substance: DUPILUMAB
     Indication: Dermatitis atopic
     Dosage: 300 MG, QOW
     Route: 058
     Dates: start: 20211112
  2. PREDNISONE [Concomitant]
     Active Substance: PREDNISONE
     Dosage: UNK
     Dates: start: 20220203
  3. COVID-19 VACCINE [Concomitant]
     Indication: Immunisation
  4. TRIAMCINOLONE ACETONIDE [Concomitant]
     Active Substance: TRIAMCINOLONE ACETONIDE
  5. CETAPHIL [CETYL ALCOHOL;SODIUM LAURYL SULFATE;STEARYL ALCOHOL] [Concomitant]

REACTIONS (5)
  - Intellectual disability [Unknown]
  - Pruritus [Unknown]
  - Irritability [Unknown]
  - Dry skin [Unknown]
  - Illness [Unknown]

NARRATIVE: CASE EVENT DATE: 20220107
